FAERS Safety Report 8576488-1 (Version None)
Quarter: 2012Q3

REPORT INFORMATION
  Report Type: 
  Country: None (occurrence: None)
  Receive Date: 20120807
  Receipt Date: 20120725
  Transmission Date: 20120928
  Serious: Yes (Death, Hospitalization, Other)
  Sender: FDA-Public Use
  Company Number: JP-ROCHE-1069399

PATIENT
  Sex: Female
  Weight: 55 kg

DRUGS (8)
  1. TAXOTERE [Concomitant]
     Indication: ADJUVANT THERAPY
     Route: 041
     Dates: start: 20120123, end: 20120326
  2. GRANISETRON [Concomitant]
     Indication: PROPHYLAXIS
     Route: 042
     Dates: start: 20120123, end: 20120326
  3. DEXAMETHASONE SODIUM PHOSPHATE [Concomitant]
     Indication: PROPHYLAXIS
     Route: 042
     Dates: start: 20120123, end: 20120326
  4. MUCOSTA [Concomitant]
     Indication: PROPHYLAXIS
     Route: 048
     Dates: start: 20120123, end: 20120326
  5. HERCEPTIN [Suspect]
     Route: 041
     Dates: start: 20120213, end: 20120416
  6. MOTILIUM [Concomitant]
     Indication: PROPHYLAXIS
     Route: 048
     Dates: start: 20120123, end: 20120326
  7. HERCEPTIN [Suspect]
     Indication: BREAST CANCER
     Route: 041
     Dates: start: 20120123, end: 20120123
  8. RAMELTEON [Concomitant]
     Indication: PROPHYLAXIS
     Route: 048
     Dates: start: 20120123, end: 20120326

REACTIONS (4)
  - RESPIRATORY FAILURE [None]
  - PNEUMONIA [None]
  - PNEUMOTHORAX [None]
  - PNEUMOMEDIASTINUM [None]
